FAERS Safety Report 4615145-0 (Version None)
Quarter: 2005Q1

REPORT INFORMATION
  Report Type: 
  Country: None (occurrence: None)
  Receive Date: 20050315
  Receipt Date: 20050218
  Transmission Date: 20050727
  Serious: Yes (Hospitalization, Other)
  Sender: FDA-Public Use
  Company Number: US_0503113780

PATIENT
  Age: 56 Year
  Sex: Male
  Weight: 85 kg

DRUGS (4)
  1. ZYPREXA [Suspect]
     Dosage: 10 MG DAY
     Dates: start: 20000830, end: 20040803
  2. SYMBYAX [Suspect]
     Dates: start: 20001227
  3. MIRTAZAPINE [Concomitant]
  4. GLIPIZIDE [Concomitant]

REACTIONS (7)
  - BLOOD CHOLESTEROL ABNORMAL [None]
  - BLOOD TRIGLYCERIDES INCREASED [None]
  - DIABETES MELLITUS [None]
  - HYPERGLYCAEMIC HYPEROSMOLAR NONKETOTIC SYNDROME [None]
  - MUMPS [None]
  - NEUROPATHY [None]
  - VISION BLURRED [None]
